FAERS Safety Report 8116290-8 (Version None)
Quarter: 2012Q1

REPORT INFORMATION
  Report Type: 
  Country: None (occurrence: None)
  Receive Date: 20120206
  Receipt Date: 20120202
  Transmission Date: 20120608
  Serious: Yes (Hospitalization)
  Sender: FDA-Public Use
  Company Number: IT-BAYER-2012-003169

PATIENT
  Age: 54 Year
  Sex: Male

DRUGS (2)
  1. RAMIPRIL [Concomitant]
     Dosage: DAILY DOSE 5 MG
     Route: 048
  2. NEXAVAR [Suspect]
     Indication: HEPATIC NEOPLASM MALIGNANT NON-RESECTABLE
     Dosage: DAILY DOSE 800 MG
     Route: 048
     Dates: start: 20100907, end: 20100917

REACTIONS (4)
  - ASCITES [None]
  - RESPIRATORY FAILURE [None]
  - PLEURAL EFFUSION [None]
  - DEHYDRATION [None]
